FAERS Safety Report 4374410-5 (Version None)
Quarter: 2004Q2

REPORT INFORMATION
  Report Type: 
  Country: None (occurrence: None)
  Receive Date: 20040602
  Receipt Date: 20040401
  Transmission Date: 20050107
  Serious: No
  Sender: FDA-Public Use
  Company Number: 200417276BWH

PATIENT
  Age: 45 Year
  Sex: Male

DRUGS (6)
  1. LEVITRA [Suspect]
     Indication: ERECTILE DYSFUNCTION
     Dosage: 5 MG QD ORAL
     Route: 048
     Dates: start: 20040317
  2. LEVITRA [Suspect]
     Indication: ERECTILE DYSFUNCTION
     Dosage: 5 MG QD ORAL
     Route: 048
     Dates: start: 20040318
  3. LEVITRA [Suspect]
     Indication: ERECTILE DYSFUNCTION
     Dosage: 5 MG QD ORAL
     Route: 048
     Dates: start: 20040319
  4. LEVITRA [Suspect]
     Indication: ERECTILE DYSFUNCTION
     Dosage: 5 MG QD ORAL
     Route: 048
     Dates: start: 20040320
  5. LEVITRA [Suspect]
     Indication: ERECTILE DYSFUNCTION
     Dosage: 5 MG QD ORAL
     Route: 048
     Dates: start: 20040321
  6. LOTREL [Concomitant]

REACTIONS (1)
  - ERECTILE DYSFUNCTION [None]
